FAERS Safety Report 19320531 (Version 2)
Quarter: 2021Q2

REPORT INFORMATION
  Report Type: Spontaneous
  Country: MY (occurrence: MY)
  Receive Date: 20210527
  Receipt Date: 20210601
  Transmission Date: 20210717
  Serious: Yes (Hospitalization, Other)
  Sender: FDA-Public Use
  Company Number: MY-GLAXOSMITHKLINE-MY2021GSK113178

PATIENT
  Age: 54 Year
  Sex: Male

DRUGS (8)
  1. SALBUTAMOL [Suspect]
     Active Substance: ALBUTEROL
     Dosage: 2 PUFF(S), Z (6 HOURLY)
     Route: 055
     Dates: start: 20201030, end: 20201030
  2. SALBUTAMOL [Suspect]
     Active Substance: ALBUTEROL
     Dosage: 4 PUFF(S), Z 6 HOURLY
     Route: 055
     Dates: start: 20201029, end: 20201029
  3. GLICLAZIDE [Concomitant]
     Active Substance: GLICLAZIDE
     Indication: TYPE 2 DIABETES MELLITUS
     Dosage: 40 MG (DAILY)
  4. SALBUTAMOL [Suspect]
     Active Substance: ALBUTEROL
     Indication: ASTHMA
     Dosage: 8 PUFF(S), Z (STAT AND 15 MINS LATER)
     Route: 055
     Dates: start: 20201028, end: 20201028
  5. METFORMIN [Concomitant]
     Active Substance: METFORMIN HYDROCHLORIDE
     Indication: TYPE 2 DIABETES MELLITUS
     Dosage: 1 G, BID
  6. HYDROCORTISONE ACETATE. [Concomitant]
     Active Substance: HYDROCORTISONE ACETATE
     Indication: COVID-19
     Dosage: 200 MG
     Route: 042
  7. MAGNESIUM SULFATE. [Concomitant]
     Active Substance: MAGNESIUM SULFATE
     Indication: COVID-19
     Dosage: 2.47 MMOL/L
     Route: 042
  8. BUDESONIDE. [Concomitant]
     Active Substance: BUDESONIDE
     Indication: ASTHMA
     Dosage: UNK, BID
     Route: 055

REACTIONS (6)
  - Hyperhidrosis [Recovered/Resolved]
  - Dystonia [Recovered/Resolved]
  - Paroxysmal sympathetic hyperactivity [Recovered/Resolved]
  - Dyskinesia [Recovered/Resolved]
  - Drug ineffective [Unknown]
  - Myoclonus [Recovered/Resolved]

NARRATIVE: CASE EVENT DATE: 20201028
